FAERS Safety Report 7425477-9 (Version None)
Quarter: 2011Q2

REPORT INFORMATION
  Report Type: 
  Country: None (occurrence: None)
  Receive Date: 20110412
  Receipt Date: 20110405
  Transmission Date: 20111010
  Serious: Yes (Hospitalization, Disabling, Other)
  Sender: FDA-Public Use
  Company Number: 2009SP017417

PATIENT
  Age: 23 Year
  Sex: Female
  Weight: 63.5036 kg

DRUGS (2)
  1. ADVIL LIQUI-GELS [Concomitant]
  2. NUVARING [Suspect]
     Indication: CONTRACEPTION
     Dosage: 1 DF;QM;VAG
     Route: 067
     Dates: start: 20060101, end: 20061016

REACTIONS (9)
  - DYSPLASTIC NAEVUS [None]
  - GROIN PAIN [None]
  - ANAEMIA [None]
  - PHOTOPSIA [None]
  - PELVIC VENOUS THROMBOSIS [None]
  - MAY-THURNER SYNDROME [None]
  - DEEP VEIN THROMBOSIS [None]
  - GALACTORRHOEA [None]
  - GAIT DISTURBANCE [None]
